FAERS Safety Report 14128994 (Version 1)
Quarter: 2017Q4

REPORT INFORMATION
  Report Type: Spontaneous
  Country: US (occurrence: US)
  Receive Date: 20171026
  Receipt Date: 20171026
  Transmission Date: 20180321
  Serious: No
  Sender: FDA-Public Use
  Company Number: US-GLAXOSMITHKLINE-US2017162913

PATIENT
  Sex: Female

DRUGS (3)
  1. COUMADIN [Concomitant]
     Active Substance: WARFARIN SODIUM
  2. BREO ELLIPTA [Suspect]
     Active Substance: FLUTICASONE FUROATE\VILANTEROL TRIFENATATE
     Indication: ASTHMA
     Dosage: 1 PUFF(S), QD
     Route: 055
     Dates: start: 201709
  3. ALBUTEROL INHALER [Concomitant]
     Active Substance: ALBUTEROL

REACTIONS (6)
  - Dysphonia [Not Recovered/Not Resolved]
  - Wheezing [Not Recovered/Not Resolved]
  - Intentional product misuse [Unknown]
  - Drug effect decreased [Unknown]
  - Drug dose omission [Unknown]
  - Dyspnoea [Not Recovered/Not Resolved]
